FAERS Safety Report 10693672 (Version 1)
Quarter: 2015Q1

REPORT INFORMATION
  Report Type: Report from Study
  Country: US (occurrence: US)
  Receive Date: 20150106
  Receipt Date: 20150106
  Transmission Date: 20150721
  Serious: Yes (Other)
  Sender: FDA-Public Use
  Company Number: US-SA-2015SA000316

PATIENT
  Age: 45 Year
  Sex: Female

DRUGS (1)
  1. AUBAGIO [Suspect]
     Active Substance: TERIFLUNOMIDE
     Indication: MULTIPLE SCLEROSIS
     Route: 048
     Dates: start: 20140301, end: 20141216

REACTIONS (6)
  - Urinary tract infection [Unknown]
  - Alopecia [Recovering/Resolving]
  - Tooth abscess [Unknown]
  - Ear infection [Unknown]
  - Subcutaneous abscess [Unknown]
  - Bronchitis [Unknown]
